FAERS Safety Report 13208423 (Version 1)
Quarter: 2017Q1

REPORT INFORMATION
  Report Type: Spontaneous
  Country: US (occurrence: US)
  Receive Date: 20170209
  Receipt Date: 20170209
  Transmission Date: 20170428
  Serious: No
  Sender: FDA-Public Use
  Company Number: US-ROCHE-1740512

PATIENT
  Age: 11 Year
  Sex: Male
  Weight: 36.32 kg

DRUGS (3)
  1. NUTROPIN AQ [Suspect]
     Active Substance: SOMATROPIN
     Indication: GROWTH HORMONE DEFICIENCY
     Dosage: ALTERNATING SIX DAYS PER WEEK , ALTERNATING WITH 2.5 MG
     Route: 058
     Dates: start: 20120401
  2. SINGULAIR [Concomitant]
     Active Substance: MONTELUKAST SODIUM
  3. NUTROPIN AQ [Suspect]
     Active Substance: SOMATROPIN
     Dosage: ALTERNATING SIX DAYS PER WEEK
     Route: 058
     Dates: start: 20120401

REACTIONS (1)
  - Injection site urticaria [Unknown]

NARRATIVE: CASE EVENT DATE: 20160409
